FAERS Safety Report 15867696 (Version 8)
Quarter: 2019Q2

REPORT INFORMATION
  Report Type: Report from Study
  Country: DE (occurrence: DE)
  Receive Date: 20190125
  Receipt Date: 20190501
  Transmission Date: 20190711
  Serious: Yes (Death, Hospitalization, Other)
  Sender: FDA-Public Use
  Company Number: DE-PORTOLA PHARMACEUTICALS, INC.-2019DE000005

PATIENT
  Age: 85 Year
  Sex: Female

DRUGS (13)
  1. HYDROMORPHONE [Concomitant]
     Active Substance: HYDROMORPHONE
  2. TIOTROPIUM                         /01585202/ [Concomitant]
     Route: 055
  3. CANDESARTAN. [Concomitant]
     Active Substance: CANDESARTAN
  4. ANDEXXA [Suspect]
     Active Substance: ANDEXANET ALFA
     Dosage: 960 MG, SINGLE INFUSION
     Route: 042
     Dates: start: 20190114, end: 20190114
  5. PANTOPRAZOLE [Concomitant]
     Active Substance: PANTOPRAZOLE
  6. XARELTO [Concomitant]
     Active Substance: RIVAROXABAN
     Dosage: 20 MG, QD
     Dates: end: 20190114
  7. METAMIZOLE [Concomitant]
     Active Substance: METAMIZOLE
  8. URAPIDIL [Concomitant]
     Active Substance: URAPIDIL
  9. CINNARIZINE W/DIMENHYDRINATE [Concomitant]
     Dosage: PRN
  10. LERCANIDIPINE [Concomitant]
     Active Substance: LERCANIDIPINE
  11. METOPROLOL. [Concomitant]
     Active Substance: METOPROLOL
  12. DESLORATADINE. [Concomitant]
     Active Substance: DESLORATADINE
     Dosage: PRN
  13. ANDEXXA [Suspect]
     Active Substance: ANDEXANET ALFA
     Indication: PROCOAGULANT THERAPY
     Dosage: 800 MG, SINGLE BOLUS
     Route: 040
     Dates: start: 20190114, end: 20190114

REACTIONS (3)
  - CNS ventriculitis [Not Recovered/Not Resolved]
  - Myocardial infarction [Not Recovered/Not Resolved]
  - Respiratory failure [Fatal]

NARRATIVE: CASE EVENT DATE: 20190117
